APPROVED DRUG PRODUCT: TESTOSTERONE
Active Ingredient: TESTOSTERONE
Strength: 50MG/5GM PACKET
Dosage Form/Route: GEL;TRANSDERMAL
Application: A091073 | Product #001 | TE Code: AB2
Applicant: ACTAVIS LABORATORIES UT INC
Approved: Sep 18, 2017 | RLD: No | RS: No | Type: RX